FAERS Safety Report 5953654-2 (Version None)
Quarter: 2008Q4

REPORT INFORMATION
  Report Type: 
  Country: None (occurrence: None)
  Receive Date: 20081114
  Receipt Date: 20081110
  Transmission Date: 20090506
  Serious: Yes (Life-Threatening)
  Sender: FDA-Public Use
  Company Number: B0545406A

PATIENT
  Age: 90 Year
  Sex: Female
  Weight: 37.6 kg

DRUGS (6)
  1. ARIXTRA [Suspect]
     Indication: ACUTE CORONARY SYNDROME
     Route: 058
     Dates: start: 20081029, end: 20081029
  2. ASPIRIN [Concomitant]
     Indication: ACUTE CORONARY SYNDROME
     Dosage: 60MG PER DAY
     Route: 048
     Dates: start: 20081029
  3. PLAVIX [Concomitant]
     Indication: ACUTE CORONARY SYNDROME
     Dosage: 75MG PER DAY
     Route: 048
     Dates: start: 20081029
  4. MIRACID [Concomitant]
     Indication: ACUTE CORONARY SYNDROME
     Dosage: 20MG TWICE PER DAY
     Route: 048
     Dates: start: 20081029
  5. RENITEC [Concomitant]
     Indication: HYPERTENSION
     Dosage: 5MG PER DAY
     Route: 048
     Dates: start: 20081029
  6. HEPARIN [Concomitant]
     Route: 042

REACTIONS (1)
  - CATHETER THROMBOSIS [None]
